FAERS Safety Report 7067392-9 (Version None)
Quarter: 2010Q4

REPORT INFORMATION
  Report Type: 
  Country: None (occurrence: None)
  Receive Date: 20101026
  Receipt Date: 20101026
  Transmission Date: 20110411
  Serious: Yes (Other)
  Sender: FDA-Public Use
  Company Number: None

PATIENT
  Sex: Female
  Weight: 89.8122 kg

DRUGS (1)
  1. SYNTHROID [Suspect]
     Indication: HYPOTHYROIDISM
     Dosage: 60 MG PO
     Route: 048

REACTIONS (4)
  - ALOPECIA [None]
  - DRY SKIN [None]
  - FATIGUE [None]
  - TRI-IODOTHYRONINE DECREASED [None]
